FAERS Safety Report 4566568-X (Version None)
Quarter: 2005Q1

REPORT INFORMATION
  Report Type: 
  Country: None (occurrence: None)
  Receive Date: 20050201
  Receipt Date: 20050124
  Transmission Date: 20050727
  Serious: Yes (Disabling)
  Sender: FDA-Public Use
  Company Number: PHFR2005GB00681

PATIENT
  Age: 77 Year
  Sex: Female

DRUGS (3)
  1. EXELON [Suspect]
     Route: 065
  2. ENALAPRIL MALEATE [Concomitant]
     Route: 065
  3. THYROXINE [Concomitant]

REACTIONS (2)
  - DYSPNOEA [None]
  - NAUSEA [None]
